FAERS Safety Report 12473079 (Version 3)
Quarter: 2017Q2

REPORT INFORMATION
  Report Type: Report from Study
  Country: FR (occurrence: FR)
  Receive Date: 20160616
  Receipt Date: 20170522
  Transmission Date: 20170830
  Serious: Yes (Death, Hospitalization)
  Sender: FDA-Public Use
  Company Number: FR-INCYTE CORPORATION-2016IN002213

PATIENT

DRUGS (5)
  1. CARBOLEVURE [Concomitant]
     Active Substance: ACTIVATED CHARCOAL\YEAST
     Indication: DIARRHOEA
     Dosage: UNK
     Route: 065
     Dates: start: 201603
  2. CARBOLEVURE [Concomitant]
     Active Substance: ACTIVATED CHARCOAL\YEAST
     Dosage: UNK
     Route: 065
     Dates: start: 201603
  3. JAKAVI [Suspect]
     Active Substance: RUXOLITINIB
     Indication: MYELOFIBROSIS
     Dosage: UNK
     Route: 065
     Dates: start: 20151209, end: 20160330
  4. PLAVIX [Concomitant]
     Active Substance: CLOPIDOGREL BISULFATE
     Indication: PRODUCT USED FOR UNKNOWN INDICATION
     Dosage: UNK
     Route: 065
     Dates: start: 2006, end: 20160114
  5. EXACYL [Concomitant]
     Active Substance: TRANEXAMIC ACID
     Indication: GINGIVAL BLEEDING
     Dosage: UNK
     Route: 065
     Dates: start: 20160217

REACTIONS (5)
  - Coronary artery disease [Unknown]
  - Anaemia [Unknown]
  - Myelofibrosis [Fatal]
  - Anaemia [Recovered/Resolved]
  - Thrombocytopenia [Recovered/Resolved]

NARRATIVE: CASE EVENT DATE: 20160326
